FAERS Safety Report 24023527 (Version 3)
Quarter: 2024Q3

REPORT INFORMATION
  Report Type: Spontaneous
  Country: US (occurrence: US)
  Receive Date: 20240627
  Receipt Date: 20240706
  Transmission Date: 20241017
  Serious: Yes (Other)
  Sender: ROCHE
  Company Number: US-ROCHE-3570773

PATIENT
  Age: 80 Year
  Sex: Female

DRUGS (1)
  1. VABYSMO [Suspect]
     Active Substance: FARICIMAB\FARICIMAB-SVOA
     Indication: Age-related macular degeneration
     Route: 065

REACTIONS (2)
  - Keratouveitis [Recovered/Resolved]
  - Episcleritis [Unknown]
